FAERS Safety Report 7244246-6 (Version None)
Quarter: 2011Q1

REPORT INFORMATION
  Report Type: 
  Country: None (occurrence: None)
  Receive Date: 20110119
  Receipt Date: 20110119
  Transmission Date: 20110831
  Serious: Yes (Hospitalization)
  Sender: FDA-Public Use
  Company Number: None

PATIENT
  Age: 59 Year
  Sex: Female
  Weight: 77.8 kg

DRUGS (11)
  1. LIPITOR [Concomitant]
  2. PREDNISONE [Concomitant]
  3. NEXIUM [Concomitant]
  4. TACROLIMUS [Concomitant]
  5. SODIUM BICARBONATE [Concomitant]
  6. VALGANCICLOVIR HCL [Suspect]
     Indication: CYTOMEGALOVIRUS INFECTION
     Dosage: 900 MG DAILY PO
     Route: 048
     Dates: start: 20100616, end: 20101101
  7. MAGNESIUM OXIDE [Concomitant]
  8. GANCICLOVIR [Concomitant]
  9. BACTRIM [Concomitant]
  10. EFFEXOR [Concomitant]
  11. GANCICLOVIR [Suspect]
     Indication: CYTOMEGALOVIRUS INFECTION
     Dosage: 200 MG TWICE DAILY IV
     Route: 042
     Dates: start: 20110111, end: 20110116

REACTIONS (2)
  - CYTOMEGALOVIRUS COLITIS [None]
  - LEUKOPENIA [None]
